FAERS Safety Report 14323561 (Version 1)
Quarter: 2017Q4

REPORT INFORMATION
  Report Type: Report from Study
  Country: US (occurrence: US)
  Receive Date: 20171226
  Receipt Date: 20171226
  Transmission Date: 20180321
  Serious: Yes (Hospitalization, Other)
  Sender: FDA-Public Use
  Company Number: US-BRISTOL-MYERS SQUIBB COMPANY-BMS-2017-117335

PATIENT
  Age: 51 Year
  Sex: Female
  Weight: 73.75 kg

DRUGS (3)
  1. IPILIMUMAB [Suspect]
     Active Substance: IPILIMUMAB
     Indication: NEOPLASM
     Dosage: UNK
     Route: 065
     Dates: start: 20170524, end: 20170705
  2. ENTINOSTAT [Suspect]
     Active Substance: ENTINOSTAT
     Indication: NEOPLASM
     Dosage: 0 MG, UNK
     Route: 065
     Dates: start: 20170510, end: 20171101
  3. NIVOLUMAB [Suspect]
     Active Substance: NIVOLUMAB
     Indication: NEOPLASM
     Dosage: 0 MG, UNK
     Route: 065
     Dates: start: 20170524, end: 20171025

REACTIONS (5)
  - Hypokalaemia [Not Recovered/Not Resolved]
  - Lipase increased [Not Recovered/Not Resolved]
  - Abdominal pain [Not Recovered/Not Resolved]
  - Amylase increased [Not Recovered/Not Resolved]
  - Diarrhoea [Not Recovered/Not Resolved]

NARRATIVE: CASE EVENT DATE: 20171108
